FAERS Safety Report 10175414 (Version 2)
Quarter: 2014Q2

REPORT INFORMATION
  Report Type: Report from Study
  Country: DE (occurrence: DE)
  Receive Date: 20140515
  Receipt Date: 20140515
  Transmission Date: 20141212
  Serious: Yes (Hospitalization)
  Sender: FDA-Public Use
  Company Number: DE-US-EMD SERONO, INC.-7279800

PATIENT
  Sex: Female
  Weight: 60 kg

DRUGS (7)
  1. REBIF [Suspect]
     Indication: MULTIPLE SCLEROSIS
     Route: 058
  2. REBIF [Suspect]
     Route: 058
     Dates: start: 20140129, end: 20140401
  3. METHYLPREDNISOLONE [Suspect]
     Indication: MULTIPLE SCLEROSIS RELAPSE
     Route: 042
     Dates: start: 20140129, end: 20140131
  4. METHYLPREDNISOLONE [Suspect]
     Dosage: START 80 MG, END 10 MG
     Route: 048
     Dates: start: 20140207, end: 20140217
  5. GLUCOSE [Suspect]
     Indication: MULTIPLE SCLEROSIS RELAPSE
     Route: 042
     Dates: start: 20140129, end: 20140131
  6. GLUCOSE [Suspect]
     Route: 048
     Dates: start: 20140207, end: 20140217
  7. PANTOPRAZOLE [Concomitant]
     Indication: GASTRITIS PROPHYLAXIS
     Route: 048
     Dates: start: 20140129, end: 20140217

REACTIONS (3)
  - Jaundice [Recovering/Resolving]
  - Multiple sclerosis relapse [Unknown]
  - Drug interaction [Unknown]
